FAERS Safety Report 20455995 (Version 1)
Quarter: 2022Q1

REPORT INFORMATION
  Report Type: Spontaneous
  Country: US (occurrence: US)
  Receive Date: 20220210
  Receipt Date: 20220210
  Transmission Date: 20220423
  Serious: Yes (Other)
  Sender: FDA-Public Use
  Company Number: US-GLAXOSMITHKLINE-US2022GSK024065

PATIENT
  Sex: Male

DRUGS (56)
  1. ZANTAC [Suspect]
     Active Substance: RANITIDINE HYDROCHLORIDE
     Indication: Dyspepsia
     Dosage: 25 MG BOTH
     Route: 065
     Dates: start: 198505, end: 201006
  2. ZANTAC [Suspect]
     Active Substance: RANITIDINE HYDROCHLORIDE
     Indication: Dyspepsia
     Dosage: 75 MG BOTH
     Route: 065
     Dates: start: 198505, end: 201006
  3. ZANTAC [Suspect]
     Active Substance: RANITIDINE HYDROCHLORIDE
     Indication: Abdominal discomfort
     Dosage: 150 MG BOTH
     Route: 065
     Dates: start: 198505, end: 201006
  4. ZANTAC [Suspect]
     Active Substance: RANITIDINE HYDROCHLORIDE
     Dosage: 300 MG, QD
     Route: 065
     Dates: start: 198505, end: 201006
  5. ZANTAC [Suspect]
     Active Substance: RANITIDINE HYDROCHLORIDE
     Dosage: UNK
  6. ZANTAC [Suspect]
     Active Substance: RANITIDINE HYDROCHLORIDE
     Dosage: UNK
  7. ZANTAC [Suspect]
     Active Substance: RANITIDINE HYDROCHLORIDE
     Dosage: UNK
  8. ZANTAC [Suspect]
     Active Substance: RANITIDINE HYDROCHLORIDE
     Indication: Dyspepsia
     Dosage: 25 MG BOTH
     Route: 065
     Dates: start: 198505, end: 201006
  9. ZANTAC [Suspect]
     Active Substance: RANITIDINE HYDROCHLORIDE
     Indication: Dyspepsia
     Dosage: 75 MG BOTH
     Route: 065
     Dates: start: 198505, end: 201006
  10. ZANTAC [Suspect]
     Active Substance: RANITIDINE HYDROCHLORIDE
     Indication: Abdominal discomfort
     Dosage: 150 MG BOTH
     Route: 065
     Dates: start: 198505, end: 201006
  11. ZANTAC [Suspect]
     Active Substance: RANITIDINE HYDROCHLORIDE
     Dosage: 300 MG, QD
     Route: 065
     Dates: start: 198505, end: 201006
  12. ZANTAC [Suspect]
     Active Substance: RANITIDINE HYDROCHLORIDE
     Dosage: UNK
  13. ZANTAC [Suspect]
     Active Substance: RANITIDINE HYDROCHLORIDE
     Dosage: UNK
  14. ZANTAC [Suspect]
     Active Substance: RANITIDINE HYDROCHLORIDE
     Dosage: UNK
  15. ZANTAC [Suspect]
     Active Substance: RANITIDINE HYDROCHLORIDE
     Indication: Dyspepsia
     Dosage: 25 MG BOTH
     Route: 065
     Dates: start: 198505, end: 201006
  16. ZANTAC [Suspect]
     Active Substance: RANITIDINE HYDROCHLORIDE
     Indication: Dyspepsia
     Dosage: 75 MG BOTH
     Route: 065
     Dates: start: 198505, end: 201006
  17. ZANTAC [Suspect]
     Active Substance: RANITIDINE HYDROCHLORIDE
     Indication: Abdominal discomfort
     Dosage: 150 MG BOTH
     Route: 065
     Dates: start: 198505, end: 201006
  18. ZANTAC [Suspect]
     Active Substance: RANITIDINE HYDROCHLORIDE
     Dosage: 300 MG, QD
     Route: 065
     Dates: start: 198505, end: 201006
  19. ZANTAC [Suspect]
     Active Substance: RANITIDINE HYDROCHLORIDE
     Dosage: UNK
  20. ZANTAC [Suspect]
     Active Substance: RANITIDINE HYDROCHLORIDE
     Dosage: UNK
  21. ZANTAC [Suspect]
     Active Substance: RANITIDINE HYDROCHLORIDE
     Dosage: UNK
  22. RANITIDINE [Suspect]
     Active Substance: RANITIDINE
     Indication: Dyspepsia
     Dosage: 25 MG BOTH
     Route: 065
     Dates: start: 198505, end: 201006
  23. RANITIDINE [Suspect]
     Active Substance: RANITIDINE
     Indication: Dyspepsia
     Dosage: 75 MG BOTH
     Route: 065
     Dates: start: 198505, end: 201006
  24. RANITIDINE [Suspect]
     Active Substance: RANITIDINE
     Indication: Abdominal discomfort
     Dosage: 150 MG BOTH
     Route: 065
     Dates: start: 198505, end: 201006
  25. RANITIDINE [Suspect]
     Active Substance: RANITIDINE
     Dosage: 25 MG BOTH
     Route: 065
     Dates: start: 198505, end: 201006
  26. RANITIDINE [Suspect]
     Active Substance: RANITIDINE
     Dosage: 75 MG BOTH
     Route: 065
     Dates: start: 198505, end: 201006
  27. RANITIDINE [Suspect]
     Active Substance: RANITIDINE
     Dosage: 150 MG BOTH
     Route: 065
     Dates: start: 198505, end: 201006
  28. RANITIDINE [Suspect]
     Active Substance: RANITIDINE
     Dosage: 300 MG, QD
     Route: 065
     Dates: start: 198505, end: 201006
  29. ZANTAC [Suspect]
     Active Substance: RANITIDINE HYDROCHLORIDE
     Indication: Dyspepsia
     Dosage: 15MG/ML|OVER THE COUNTER
     Route: 065
     Dates: start: 198505, end: 201006
  30. ZANTAC [Suspect]
     Active Substance: RANITIDINE HYDROCHLORIDE
     Indication: Dyspepsia
     Dosage: UNK
  31. ZANTAC [Suspect]
     Active Substance: RANITIDINE HYDROCHLORIDE
     Indication: Abdominal discomfort
     Dosage: UNK
  32. ZANTAC [Suspect]
     Active Substance: RANITIDINE HYDROCHLORIDE
     Dosage: UNK
  33. ZANTAC [Suspect]
     Active Substance: RANITIDINE HYDROCHLORIDE
     Dosage: UNK
  34. ZANTAC [Suspect]
     Active Substance: RANITIDINE HYDROCHLORIDE
     Dosage: UNK
  35. ZANTAC [Suspect]
     Active Substance: RANITIDINE HYDROCHLORIDE
     Dosage: UNK
  36. RANITIDINE [Suspect]
     Active Substance: RANITIDINE
     Indication: Dyspepsia
     Dosage: 25 MG BOTH
     Route: 065
     Dates: start: 198505, end: 201006
  37. RANITIDINE [Suspect]
     Active Substance: RANITIDINE
     Indication: Dyspepsia
     Dosage: 75 MG BOTH
     Route: 065
     Dates: start: 198505, end: 201006
  38. RANITIDINE [Suspect]
     Active Substance: RANITIDINE
     Indication: Abdominal discomfort
     Dosage: 150 MG BOTH
     Route: 065
     Dates: start: 198505, end: 201006
  39. RANITIDINE [Suspect]
     Active Substance: RANITIDINE
     Dosage: 300 MG, QD
     Route: 065
     Dates: start: 198505, end: 201006
  40. RANITIDINE [Suspect]
     Active Substance: RANITIDINE
     Dosage: UNK
  41. RANITIDINE [Suspect]
     Active Substance: RANITIDINE
     Dosage: UNK
  42. RANITIDINE [Suspect]
     Active Substance: RANITIDINE
     Dosage: UNK
  43. RANITIDINE [Suspect]
     Active Substance: RANITIDINE
     Indication: Dyspepsia
     Dosage: 25 MG BOTH
     Route: 065
     Dates: start: 198505, end: 201006
  44. RANITIDINE [Suspect]
     Active Substance: RANITIDINE
     Indication: Dyspepsia
     Dosage: 75 MG BOTH
     Route: 065
     Dates: start: 198505, end: 201006
  45. RANITIDINE [Suspect]
     Active Substance: RANITIDINE
     Indication: Abdominal discomfort
     Dosage: 150 MG BOTH
     Route: 065
     Dates: start: 198505, end: 201006
  46. RANITIDINE [Suspect]
     Active Substance: RANITIDINE
     Dosage: 300 MG, QD
     Route: 065
     Dates: start: 198505, end: 201006
  47. RANITIDINE [Suspect]
     Active Substance: RANITIDINE
     Dosage: UNK
  48. RANITIDINE [Suspect]
     Active Substance: RANITIDINE
     Dosage: UNK
  49. RANITIDINE [Suspect]
     Active Substance: RANITIDINE
     Dosage: UNK
  50. RANITIDINE [Suspect]
     Active Substance: RANITIDINE
     Indication: Dyspepsia
     Dosage: 25 MG BOTH
     Route: 065
     Dates: start: 198505, end: 201006
  51. RANITIDINE [Suspect]
     Active Substance: RANITIDINE
     Indication: Dyspepsia
     Dosage: 75 MG BOTH
     Route: 065
     Dates: start: 198505, end: 201006
  52. RANITIDINE [Suspect]
     Active Substance: RANITIDINE
     Indication: Abdominal discomfort
     Dosage: 150 MG BOTH
     Route: 065
     Dates: start: 198505, end: 201006
  53. RANITIDINE [Suspect]
     Active Substance: RANITIDINE
     Dosage: 300 MG, QD
     Route: 065
     Dates: start: 198505, end: 201006
  54. RANITIDINE [Suspect]
     Active Substance: RANITIDINE
     Dosage: UNK
  55. RANITIDINE [Suspect]
     Active Substance: RANITIDINE
     Dosage: UNK
  56. RANITIDINE [Suspect]
     Active Substance: RANITIDINE
     Dosage: UNK

REACTIONS (2)
  - Bladder cancer [Unknown]
  - Prostate cancer [Unknown]
